FAERS Safety Report 21059551 (Version 2)
Quarter: 2022Q3

REPORT INFORMATION
  Report Type: Spontaneous
  Country: IT (occurrence: IT)
  Receive Date: 20220708
  Receipt Date: 20220812
  Transmission Date: 20221026
  Serious: Yes (Hospitalization)
  Sender: FDA-Public Use
  Company Number: IT-ELI_LILLY_AND_COMPANY-IT202206013886

PATIENT
  Age: 82 Year
  Sex: Female

DRUGS (3)
  1. TRULICITY [Suspect]
     Active Substance: DULAGLUTIDE
     Indication: Product used for unknown indication
     Dosage: 0.75 MG, WEEKLY (1/W)
     Route: 058
     Dates: start: 20220616
  2. NOVORAPID [Concomitant]
     Active Substance: INSULIN ASPART
     Indication: Product used for unknown indication
     Dosage: 6+6 IU, OTHER
  3. INSULIN DEGLUDEC [Concomitant]
     Active Substance: INSULIN DEGLUDEC
     Indication: Product used for unknown indication
     Dosage: 10 INTERNATIONAL UNIT, UNKNOWN
     Route: 065

REACTIONS (4)
  - Syncope [Recovering/Resolving]
  - Atrioventricular block first degree [Recovering/Resolving]
  - Haemoglobin decreased [Unknown]
  - Glycosylated haemoglobin increased [Unknown]

NARRATIVE: CASE EVENT DATE: 20220618
